FAERS Safety Report 8982985 (Version 7)
Quarter: 2014Q2

REPORT INFORMATION
  Report Type: Spontaneous
  Country: US (occurrence: US)
  Receive Date: 20121224
  Receipt Date: 20140505
  Transmission Date: 20141212
  Serious: Yes (Hospitalization, Other)
  Sender: FDA-Public Use
  Company Number: US-009507513-1212USA009031

PATIENT
  Sex: Female
  Weight: 67.57 kg

DRUGS (2)
  1. FOSAMAX [Suspect]
     Indication: OSTEOPOROSIS
     Dosage: 70 MG, QW
     Route: 048
     Dates: start: 1998, end: 200511
  2. ACTONEL [Suspect]
     Indication: OSTEOPOROSIS
     Dosage: 35 MG, UNK
     Route: 048
     Dates: start: 20051116, end: 200805

REACTIONS (16)
  - Femur fracture [Unknown]
  - Intramedullary rod insertion [Unknown]
  - Femur fracture [Unknown]
  - Hypertension [Unknown]
  - Low turnover osteopathy [Unknown]
  - Cardiomegaly [Unknown]
  - Renal impairment [Unknown]
  - Appendicectomy [Unknown]
  - Tonsillectomy [Unknown]
  - Asthma [Unknown]
  - Foot fracture [Unknown]
  - Tooth extraction [Unknown]
  - Foot fracture [Unknown]
  - Migraine [Unknown]
  - Back pain [Unknown]
  - Malaise [Unknown]
